FAERS Safety Report 5150268-1 (Version None)
Quarter: 2006Q4

REPORT INFORMATION
  Report Type: 
  Country: None (occurrence: None)
  Receive Date: 20061109
  Receipt Date: 20061109
  Transmission Date: 20070319
  Serious: Yes (Death)
  Sender: FDA-Public Use
  Company Number: None

PATIENT
  Age: 46 Year
  Sex: Male

DRUGS (2)
  1. ZOLOFT V. PLACEBO [Suspect]
     Indication: DEPRESSION
     Dosage: 50 MG DAILY
     Dates: start: 20060911, end: 20061006
  2. ZOLOFT V. PLACEBO [Suspect]
     Indication: PROPHYLAXIS
     Dosage: 50 MG DAILY
     Dates: start: 20060911, end: 20061006

REACTIONS (3)
  - LYMPHOMA [None]
  - MULTI-ORGAN FAILURE [None]
  - TRANSPLANT [None]
